FAERS Safety Report 24147612 (Version 1)
Quarter: 2024Q3

REPORT INFORMATION
  Report Type: Spontaneous
  Country: GB (occurrence: GB)
  Receive Date: 20240729
  Receipt Date: 20240729
  Transmission Date: 20241016
  Serious: Yes (Hospitalization)
  Sender: MYLAN
  Company Number: GB-MYLANLABS-2024M1008499

PATIENT
  Age: 38 Year
  Sex: Female

DRUGS (6)
  1. CLOZARIL [Suspect]
     Active Substance: CLOZAPINE
     Indication: Borderline personality disorder
     Dosage: 6.25 MILLIGRAM
     Route: 048
     Dates: start: 20240212, end: 20240212
  2. CLOZARIL [Suspect]
     Active Substance: CLOZAPINE
     Indication: Eating disorder
     Dosage: UNK
     Route: 048
  3. CLOZARIL [Suspect]
     Active Substance: CLOZAPINE
     Indication: Paranoia
     Dosage: UNK
     Route: 048
     Dates: start: 20240410
  4. CLOZARIL [Suspect]
     Active Substance: CLOZAPINE
     Indication: Schizophrenia
  5. CLOZARIL [Suspect]
     Active Substance: CLOZAPINE
     Indication: Autism spectrum disorder
  6. CLOZARIL [Suspect]
     Active Substance: CLOZAPINE
     Indication: Personality disorder

REACTIONS (7)
  - Decreased appetite [Unknown]
  - Eating disorder [Unknown]
  - Blood potassium decreased [Unknown]
  - General physical condition abnormal [Unknown]
  - Eosinophil count decreased [Unknown]
  - Treatment noncompliance [Unknown]
  - Off label use [Unknown]

NARRATIVE: CASE EVENT DATE: 20240226
